FAERS Safety Report 21278869 (Version 1)
Quarter: 2022Q3

REPORT INFORMATION
  Report Type: Spontaneous
  Country: None (occurrence: US)
  Receive Date: 20220901
  Receipt Date: 20220901
  Transmission Date: 20221027
  Serious: Yes (Hospitalization, Other)
  Sender: FDA-Public Use
  Company Number: US-Oxford Pharmaceuticals, LLC-2132441

PATIENT
  Age: 49 Year
  Sex: Male

DRUGS (6)
  1. TIZANIDINE HYDROCHLORIDE [Suspect]
     Active Substance: TIZANIDINE HYDROCHLORIDE
     Indication: Product used for unknown indication
  2. PALIPERIDONE [Suspect]
     Active Substance: PALIPERIDONE
  3. DULOXETINE [Suspect]
     Active Substance: DULOXETINE
  4. LAMOTRIGINE [Suspect]
     Active Substance: LAMOTRIGINE
  5. HYDROXYZINE [Suspect]
     Active Substance: HYDROXYZINE HYDROCHLORIDE
  6. LISINOPRIL [Suspect]
     Active Substance: LISINOPRIL

REACTIONS (5)
  - Serotonin syndrome [Unknown]
  - Hallucination, auditory [Unknown]
  - Hallucination, visual [Unknown]
  - Intentional overdose [Unknown]
  - Intentional product misuse [Unknown]
